FAERS Safety Report 26039942 (Version 1)
Quarter: 2025Q4

REPORT INFORMATION
  Report Type: Spontaneous
  Country: US (occurrence: US)
  Receive Date: 20251113
  Receipt Date: 20251113
  Transmission Date: 20260117
  Serious: No
  Sender: AUROBINDO
  Company Number: US-AUROBINDO-AUR-APL-2025-048635

PATIENT
  Age: 5 Year
  Sex: Male
  Weight: 20.41 kg

DRUGS (1)
  1. VIGABATRIN FOR ORAL SOLUTION USP, 500 MG [Suspect]
     Active Substance: VIGABATRIN
     Indication: Infantile spasms
     Dosage: UNK, TWO TIMES A DAY
     Dates: start: 20250814, end: 20250915

REACTIONS (2)
  - Wrong technique in product usage process [Unknown]
  - Product packaging quantity issue [Unknown]

NARRATIVE: CASE EVENT DATE: 20250814
